FAERS Safety Report 26001516 (Version 1)
Quarter: 2025Q4

REPORT INFORMATION
  Report Type: Spontaneous
  Country: EU (occurrence: EU)
  Receive Date: 20251105
  Receipt Date: 20251105
  Transmission Date: 20260118
  Serious: Yes (Congenital Anomaly, Other)
  Sender: ELI LILLY AND COMPANY
  Company Number: EU-EMB-M202402742-1

PATIENT

DRUGS (10)
  1. DULOXETINE HYDROCHLORIDE [Suspect]
     Active Substance: DULOXETINE HYDROCHLORIDE
     Indication: Depression
     Dosage: 60 MG, DAILY
     Route: 064
     Dates: start: 202401, end: 202410
  2. DULOXETINE HYDROCHLORIDE [Suspect]
     Active Substance: DULOXETINE HYDROCHLORIDE
     Indication: Depression
     Dosage: 60 MG, DAILY
     Route: 064
     Dates: start: 202401, end: 202410
  3. DULOXETINE HYDROCHLORIDE [Suspect]
     Active Substance: DULOXETINE HYDROCHLORIDE
     Indication: Endometriosis
     Dosage: 30 MG, DAILY
     Route: 064
  4. DULOXETINE HYDROCHLORIDE [Suspect]
     Active Substance: DULOXETINE HYDROCHLORIDE
     Indication: Endometriosis
     Dosage: 30 MG, DAILY
     Route: 064
  5. DULOXETINE HYDROCHLORIDE [Suspect]
     Active Substance: DULOXETINE HYDROCHLORIDE
     Dosage: 20 MG, DAILY
     Route: 064
  6. DULOXETINE HYDROCHLORIDE [Suspect]
     Active Substance: DULOXETINE HYDROCHLORIDE
     Dosage: 20 MG, DAILY
     Route: 064
  7. PROGESTERONE [Suspect]
     Active Substance: PROGESTERONE
     Indication: Prophylaxis of abortion
     Dosage: BEGINNING AFTER EMBRYO TRANSFER, 200 MG/D AT FIRST CONTACT IN GW 8, HIGHER DOSAGE IN THE EARLIER
     Route: 064
     Dates: start: 202401, end: 202404
  8. PROGESTERONE [Suspect]
     Active Substance: PROGESTERONE
     Indication: Prophylaxis of abortion
     Dosage: BEGINNING AFTER EMBRYO TRANSFER, 200 MG/D AT FIRST CONTACT IN GW 8, HIGHER DOSAGE IN THE EARLIER
     Route: 064
     Dates: start: 202401, end: 202404
  9. INFLUENZA VIRUS VACCINE [Concomitant]
     Active Substance: INFLUENZA VIRUS VACCINE
     Indication: Immunisation
     Dosage: UNK, UNKNOWN
     Route: 064
     Dates: start: 202409, end: 202409
  10. INFLUENZA VIRUS VACCINE [Concomitant]
     Active Substance: INFLUENZA VIRUS VACCINE
     Indication: Immunisation
     Dosage: UNK, UNKNOWN
     Route: 064
     Dates: start: 202409, end: 202409

REACTIONS (4)
  - Atrial septal defect [Not Recovered/Not Resolved]
  - Ventricular septal defect [Not Recovered/Not Resolved]
  - Breech presentation [Recovered/Resolved]
  - Foetal exposure during pregnancy [Unknown]

NARRATIVE: CASE EVENT DATE: 20241001
